FAERS Safety Report 5335464-2 (Version None)
Quarter: 2007Q2

REPORT INFORMATION
  Report Type: 
  Country: None (occurrence: None)
  Receive Date: 20070322
  Receipt Date: 20061130
  Transmission Date: 20071010
  Serious: No
  Sender: FDA-Public Use
  Company Number: 2006US001980

PATIENT
  Age: 78 Year
  Sex: Female

DRUGS (3)
  1. VESICARE [Suspect]
     Indication: POLLAKIURIA
     Dosage: 5 MG, UID/QD, 10 MG, UID/OID
     Dates: start: 20060701, end: 20060701
  2. VESICARE [Suspect]
     Indication: POLLAKIURIA
     Dosage: 5 MG, UID/QD, 10 MG, UID/OID
     Dates: end: 20060701
  3. FOSAMAX [Concomitant]

REACTIONS (1)
  - POLLAKIURIA [None]
